FAERS Safety Report 13883869 (Version 1)
Quarter: 2017Q3

REPORT INFORMATION
  Report Type: Spontaneous
  Country: US (occurrence: None)
  Receive Date: 20170818
  Receipt Date: 20170818
  Transmission Date: 20171127
  Serious: Yes (Hospitalization)
  Sender: FDA-Public Use
  Company Number: None

PATIENT
  Age: 60 Year
  Sex: Female
  Weight: 80.74 kg

DRUGS (6)
  1. PROPONIX [Concomitant]
  2. CRESTOR [Concomitant]
     Active Substance: ROSUVASTATIN CALCIUM
  3. METROPOLOL [Concomitant]
     Active Substance: METOPROLOL
  4. PLAVIX [Concomitant]
     Active Substance: CLOPIDOGREL BISULFATE
  5. REPATHA [Concomitant]
     Active Substance: EVOLOCUMAB
  6. BARIUM SWALLOW [Suspect]
     Active Substance: BARIUM SULFATE

REACTIONS (9)
  - Decreased appetite [None]
  - Diarrhoea [None]
  - Abdominal pain upper [None]
  - Muscle spasms [None]
  - Dehydration [None]
  - Vomiting [None]
  - Nausea [None]
  - Alopecia [None]
  - Headache [None]

NARRATIVE: CASE EVENT DATE: 20170731
